FAERS Safety Report 9460063 (Version 1)
Quarter: 2013Q3

REPORT INFORMATION
  Report Type: Spontaneous
  Country: US (occurrence: US)
  Receive Date: 20130815
  Receipt Date: 20130815
  Transmission Date: 20140515
  Serious: Yes (Other)
  Sender: FDA-Public Use
  Company Number: US-ABBOTT-13P-163-1131795-00

PATIENT
  Age: 67 Year
  Sex: Male

DRUGS (1)
  1. LUPRON DEPOT [Suspect]
     Indication: PROSTATE CANCER
     Route: 030
     Dates: start: 20130430

REACTIONS (8)
  - Upper extremity mass [Unknown]
  - Muscle disorder [Unknown]
  - Muscle oedema [Unknown]
  - Granuloma [Unknown]
  - Inflammation [Unknown]
  - Fibrosis [Unknown]
  - Injection site pain [Unknown]
  - Joint range of motion decreased [Unknown]
